FAERS Safety Report 7804051-6 (Version None)
Quarter: 2011Q4

REPORT INFORMATION
  Report Type: 
  Country: None (occurrence: None)
  Receive Date: 20111010
  Receipt Date: 20110926
  Transmission Date: 20120403
  Serious: Yes (Other)
  Sender: FDA-Public Use
  Company Number: JP-JNJFOC-20111002689

PATIENT
  Sex: Male

DRUGS (2)
  1. DORIPENEM MONOHYDRATE [Suspect]
     Indication: INFLAMMATION
     Route: 042
     Dates: start: 20110903
  2. DORIPENEM MONOHYDRATE [Suspect]
     Route: 042
     Dates: end: 20110829

REACTIONS (3)
  - RENAL DISORDER [None]
  - OEDEMA PERIPHERAL [None]
  - RESPIRATORY DISORDER [None]
